FAERS Safety Report 5097113-0 (Version None)
Quarter: 2006Q3

REPORT INFORMATION
  Report Type: 
  Country: None (occurrence: None)
  Receive Date: 20060901
  Receipt Date: 20060818
  Transmission Date: 20061208
  Serious: Yes (Hospitalization)
  Sender: FDA-Public Use
  Company Number: 2006PV019673

PATIENT
  Age: 59 Year
  Sex: Male
  Weight: 122.9248 kg

DRUGS (6)
  1. BYETTA [Suspect]
     Indication: DIABETES MELLITUS NON-INSULIN-DEPENDENT
     Dosage: SEE IMAGE
     Route: 058
     Dates: start: 20051201, end: 20060101
  2. BYETTA [Suspect]
     Indication: DIABETES MELLITUS NON-INSULIN-DEPENDENT
     Dosage: SEE IMAGE
     Route: 058
     Dates: start: 20060101
  3. GLUCOPHAGE [Concomitant]
  4. GLIMEPIRIDE [Concomitant]
  5. POTASSIUM [Concomitant]
  6. ^WATER PILLS^ [Concomitant]

REACTIONS (5)
  - BLOOD GLUCOSE DECREASED [None]
  - CELLULITIS [None]
  - CONDITION AGGRAVATED [None]
  - DIARRHOEA [None]
  - WEIGHT DECREASED [None]
